FAERS Safety Report 14680894 (Version 1)
Quarter: 2018Q1

REPORT INFORMATION
  Report Type: Report from Study
  Country: US (occurrence: US)
  Receive Date: 20180326
  Receipt Date: 20180326
  Transmission Date: 20180509
  Serious: Yes (Hospitalization, Other)
  Sender: FDA-Public Use
  Company Number: US-GILEAD-2018-0328450

PATIENT
  Age: 61 Year
  Sex: Male

DRUGS (7)
  1. TRIAMCINOLON                       /00031901/ [Concomitant]
     Dosage: 0.1 %
  2. VALSART [Concomitant]
     Active Substance: VALSARTAN
     Dosage: 12.5 MG
  3. RANITIDINE. [Concomitant]
     Active Substance: RANITIDINE
     Dosage: 150 MG
  4. AMOXI                              /00249601/ [Concomitant]
     Dosage: 500 MG
  5. ELIQUIS [Concomitant]
     Active Substance: APIXABAN
     Dosage: UNKNOWN
  6. RANOLAZINE. [Suspect]
     Active Substance: RANOLAZINE
     Indication: ANGINA PECTORIS
     Dosage: 500 MG, BID
     Route: 048
     Dates: start: 2017
  7. INDOMETACIN [Concomitant]
     Active Substance: INDOMETHACIN
     Dosage: 50 MG

REACTIONS (1)
  - Cerebrovascular accident [Unknown]

NARRATIVE: CASE EVENT DATE: 201709
